FAERS Safety Report 14850944 (Version 3)
Quarter: 2018Q2

REPORT INFORMATION
  Report Type: Report from Study
  Country: DE (occurrence: DE)
  Receive Date: 20180506
  Receipt Date: 20180511
  Transmission Date: 20180711
  Serious: Yes (Hospitalization)
  Sender: FDA-Public Use
  Company Number: DE-ROCHE-2115914

PATIENT
  Age: 67 Year
  Sex: Male

DRUGS (2)
  1. OBINUTUZUMAB. [Suspect]
     Active Substance: OBINUTUZUMAB
     Indication: CHRONIC LYMPHOCYTIC LEUKAEMIA
     Dosage: LAST DOSE AT 100 MG PRIOR TO SAE ON 24/APR/2018 AND 03/MAY/2018?CYCLE 1: 100 MG, D1; 900 MG, D1(2);
     Route: 042
     Dates: start: 20180424
  2. NOVALGIN (METAMIZOLE SODIUM) [Concomitant]
     Active Substance: METAMIZOLE SODIUM
     Route: 048

REACTIONS (6)
  - Atrial fibrillation [Unknown]
  - Tachycardia [Recovering/Resolving]
  - Thrombocytopenia [Recovered/Resolved]
  - Myocardial necrosis marker increased [Recovering/Resolving]
  - Liver disorder [Recovering/Resolving]
  - Pyrexia [Not Recovered/Not Resolved]

NARRATIVE: CASE EVENT DATE: 20180425
